FAERS Safety Report 17459778 (Version 1)
Quarter: 2020Q1

REPORT INFORMATION
  Report Type: Spontaneous
  Country: US (occurrence: US)
  Receive Date: 20200225
  Receipt Date: 20200225
  Transmission Date: 20200409
  Serious: No
  Sender: FDA-Public Use
  Company Number: US-VIFOR (INTERNATIONAL) INC.-VIT-2020-02117

PATIENT
  Age: 48 Year
  Sex: Male

DRUGS (5)
  1. LIPITOR [Concomitant]
     Active Substance: ATORVASTATIN CALCIUM
  2. ASPIRIN. [Concomitant]
     Active Substance: ASPIRIN
  3. CARVEDILOL. [Concomitant]
     Active Substance: CARVEDILOL
  4. OXYCODONE [Concomitant]
     Active Substance: OXYCODONE
  5. VELTASSA [Suspect]
     Active Substance: PATIROMER
     Indication: PRODUCT USED FOR UNKNOWN INDICATION
     Dosage: 8.4 GM INTO 3/4 CUP
     Route: 048

REACTIONS (2)
  - Product storage error [Unknown]
  - Memory impairment [Unknown]
